FAERS Safety Report 9591333 (Version 1)
Quarter: 2013Q4

REPORT INFORMATION
  Report Type: Spontaneous
  Country: US (occurrence: US)
  Receive Date: 20131003
  Receipt Date: 20131003
  Transmission Date: 20140711
  Serious: No
  Sender: FDA-Public Use
  Company Number: US-AMGEN-USASP2012081577

PATIENT
  Sex: Female
  Weight: 73.47 kg

DRUGS (12)
  1. ENBREL [Suspect]
     Indication: PSORIATIC ARTHROPATHY
     Dosage: 50 MG, QWK
     Route: 058
  2. PRILOSEC                           /00661201/ [Concomitant]
     Dosage: 20 MG, UNK
  3. AZOR                               /00595201/ [Concomitant]
     Dosage: 10-40 MG
  4. PREMARIN [Concomitant]
     Dosage: 0.45 MG, UNK
  5. PREDNISONE [Concomitant]
     Dosage: 1 MG, UNK
  6. LEFLUNOMIDE [Concomitant]
     Dosage: 10 MG, UNK
  7. VITAMIN D                          /00107901/ [Concomitant]
     Dosage: 1000 UNIT, UNK
  8. PROSCAR [Concomitant]
     Dosage: 5 MG, UNK
  9. OMEGA 3                            /01334101/ [Concomitant]
     Dosage: 1000 MG, UNK
  10. RESTASIS [Concomitant]
     Dosage: 0.05 %, UNK
  11. ADVIL                              /00044201/ [Concomitant]
     Dosage: 200 MG, UNK
  12. TYLENOL                            /00020001/ [Concomitant]
     Dosage: 325 MG, UNK

REACTIONS (1)
  - Drug ineffective [Unknown]
